APPROVED DRUG PRODUCT: HYDELTRASOL
Active Ingredient: PREDNISOLONE SODIUM PHOSPHATE
Strength: EQ 20MG PHOSPHATE/ML
Dosage Form/Route: INJECTABLE;INJECTION
Application: N011583 | Product #002
Applicant: MERCK AND CO INC
Approved: Approved Prior to Jan 1, 1982 | RLD: No | RS: No | Type: DISCN